FAERS Safety Report 5794478-9 (Version None)
Quarter: 2008Q2

REPORT INFORMATION
  Report Type: 
  Country: None (occurrence: None)
  Receive Date: 20080630
  Receipt Date: 20080618
  Transmission Date: 20081010
  Serious: Yes (Other)
  Sender: FDA-Public Use
  Company Number: DE-ELI_LILLY_AND_COMPANY-DE200801001795

PATIENT
  Sex: Female
  Weight: 78 kg

DRUGS (11)
  1. ZYPREXA [Suspect]
     Indication: DEPRESSION
     Dosage: 10 MG, DAILY (1/D)
     Route: 048
     Dates: start: 20070907, end: 20071018
  2. ZYPREXA [Suspect]
     Dosage: 10 MG, DAILY (1/D)
     Route: 048
     Dates: start: 20071025, end: 20071105
  3. COAPROVEL [Concomitant]
     Indication: HYPERTENSION
     Dosage: 12.5 MG, UNK
  4. BISOPROLOL FUMARATE [Concomitant]
     Indication: HYPERTENSION
     Dosage: 5 MG, UNK
     Dates: end: 20071026
  5. EBRANTIL [Concomitant]
     Indication: HYPERTENSION
     Dosage: 90 MG, UNK
  6. AMLODIPINE [Concomitant]
     Indication: HYPERTENSION
     Dosage: 5 MG, UNK
  7. IRBESARTAN [Concomitant]
     Dosage: 150 MG, UNK
     Dates: start: 20071101
  8. ESCITALOPRAM [Concomitant]
     Dates: start: 20070101
  9. DISALUNIL [Concomitant]
  10. SOLIAN [Concomitant]
     Dosage: 400 MG, UNK
     Dates: start: 20070101, end: 20070101
  11. BELOC ZOK [Concomitant]

REACTIONS (2)
  - HAEMOLYTIC ANAEMIA [None]
  - SINUS BRADYCARDIA [None]
